FAERS Safety Report 13960867 (Version 1)
Quarter: 2017Q3

REPORT INFORMATION
  Report Type: Spontaneous
  Country: JP (occurrence: JP)
  Receive Date: 20170912
  Receipt Date: 20170912
  Transmission Date: 20171128
  Serious: Yes (Hospitalization, Other)
  Sender: FDA-Public Use
  Company Number: JP-BAYER-2017-169716

PATIENT
  Sex: Male

DRUGS (1)
  1. STIVARGA [Suspect]
     Active Substance: REGORAFENIB
     Indication: COLORECTAL CANCER
     Dosage: 80 MG, QD
     Route: 048
     Dates: start: 201707, end: 20170828

REACTIONS (2)
  - Cerebral haemorrhage [Not Recovered/Not Resolved]
  - Metastases to central nervous system [None]

NARRATIVE: CASE EVENT DATE: 20170828
